FAERS Safety Report 6149768-7 (Version None)
Quarter: 2009Q2

REPORT INFORMATION
  Report Type: 
  Country: None (occurrence: None)
  Receive Date: 20090402
  Receipt Date: 20090120
  Transmission Date: 20091009
  Serious: Yes (Other)
  Sender: FDA-Public Use
  Company Number: 2009SU0018

PATIENT
  Sex: Female

DRUGS (4)
  1. SULAR [Suspect]
     Indication: HYPERTENSION
  2. LISINOPRIL [Suspect]
     Indication: HYPERTENSION
  3. TEKTURNA HCT [Suspect]
     Indication: HYPERTENSION
     Dosage: PO
     Route: 048
  4. XANAX [Concomitant]

REACTIONS (2)
  - DRUG INEFFECTIVE [None]
  - HYPERTENSION [None]
